FAERS Safety Report 8906345 (Version 1)
Quarter: 2012Q4

REPORT INFORMATION
  Report Type: Spontaneous
  Country: US (occurrence: None)
  Receive Date: 20121108
  Receipt Date: 20121108
  Transmission Date: 20130627
  Serious: Yes (Other)
  Sender: FDA-Public Use
  Company Number: AXC-2012-000523

PATIENT
  Sex: Male

DRUGS (2)
  1. MESALAMINE [Suspect]
     Indication: CROHN^S DISEASE
  2. PREDNISONE [Suspect]
     Indication: CROHN^S DISEASE

REACTIONS (5)
  - Granulomatosis with polyangiitis [None]
  - Colitis [None]
  - Subcutaneous abscess [None]
  - Crohn^s disease [None]
  - Clostridium difficile colitis [None]
